FAERS Safety Report 7744752-1 (Version None)
Quarter: 2011Q3

REPORT INFORMATION
  Report Type: 
  Country: None (occurrence: None)
  Receive Date: 20110912
  Receipt Date: 20110912
  Transmission Date: 20111222
  Serious: Yes (Other)
  Sender: FDA-Public Use
  Company Number: None

PATIENT
  Age: 59 Year
  Sex: Female
  Weight: 69.853 kg

DRUGS (1)
  1. LEVOFLOXACIN [Suspect]
     Indication: CHRONIC SINUSITIS
     Dosage: 500
     Route: 048
     Dates: start: 20110815, end: 20110824

REACTIONS (2)
  - PALLOR [None]
  - HEART RATE INCREASED [None]
